FAERS Safety Report 8087571-1 (Version None)
Quarter: 2012Q1

REPORT INFORMATION
  Report Type: 
  Country: None (occurrence: None)
  Receive Date: 20120128
  Receipt Date: 20110523
  Transmission Date: 20120608
  Serious: Yes (Hospitalization, Other)
  Sender: FDA-Public Use
  Company Number: US-ABBOTT-11P-163-0728309-00

PATIENT
  Sex: Female

DRUGS (14)
  1. PLAQUENIL [Concomitant]
     Indication: RHEUMATOID ARTHRITIS
  2. SYMBICORT [Concomitant]
     Indication: PRODUCT USED FOR UNKNOWN INDICATION
  3. FLEXADINE [Concomitant]
     Indication: PRODUCT USED FOR UNKNOWN INDICATION
  4. WARFARIN SODIUM [Concomitant]
     Indication: ATRIAL FIBRILLATION
  5. HUMIRA [Suspect]
     Indication: RHEUMATOID ARTHRITIS
     Dates: start: 20100716, end: 20110326
  6. HUMIRA [Suspect]
     Dates: start: 20110523
  7. FOLIC ACID [Concomitant]
     Indication: RHEUMATOID ARTHRITIS
  8. LISINOPRIL [Concomitant]
     Indication: HYPERTENSION
  9. CALCIUM [Concomitant]
     Indication: MINERAL SUPPLEMENTATION
  10. LIPITOR [Concomitant]
     Indication: BLOOD CHOLESTEROL INCREASED
  11. VITAMIN D [Concomitant]
     Indication: VITAMIN SUPPLEMENTATION
  12. METHOTREXATE [Concomitant]
     Indication: RHEUMATOID ARTHRITIS
  13. DIGOXIN [Concomitant]
     Indication: PRODUCT USED FOR UNKNOWN INDICATION
  14. PREDNISONE TAB [Concomitant]
     Indication: RHEUMATOID ARTHRITIS
     Dates: start: 20110401

REACTIONS (10)
  - CHOLELITHIASIS [None]
  - CHEST PAIN [None]
  - PANCREATITIS [None]
  - NASOPHARYNGITIS [None]
  - INTERNATIONAL NORMALISED RATIO INCREASED [None]
  - SEPSIS [None]
  - INJECTION SITE HAEMATOMA [None]
  - LIVER FUNCTION TEST ABNORMAL [None]
  - INCORRECT DOSE ADMINISTERED [None]
  - DEVICE MALFUNCTION [None]
